FAERS Safety Report 7220771-9 (Version None)
Quarter: 2011Q1

REPORT INFORMATION
  Report Type: 
  Country: None (occurrence: None)
  Receive Date: 20110111
  Receipt Date: 20110105
  Transmission Date: 20110831
  Serious: Yes (Hospitalization)
  Sender: FDA-Public Use
  Company Number: CH-BRISTOL-MYERS SQUIBB COMPANY-15325343

PATIENT
  Age: 43 Year
  Sex: Female

DRUGS (12)
  1. TAZOBAC [Concomitant]
  2. LIDOCAINE + TRIBENOSIDE [Concomitant]
  3. BLEOMYCIN SULFATE [Suspect]
     Indication: HODGKIN'S DISEASE
     Dosage: 21 DAY REGIMEN
     Route: 051
     Dates: start: 20081101, end: 20090301
  4. CYCLOPHOSPHAMIDE [Suspect]
     Indication: HODGKIN'S DISEASE
     Dosage: 21 DAY REGIMEN
     Route: 051
     Dates: start: 20081101, end: 20090301
  5. DIFLUCAN [Concomitant]
  6. ETOPOSIDE [Suspect]
     Indication: HODGKIN'S DISEASE
     Dosage: 21 DAY REGIMEN
     Route: 051
     Dates: start: 20081101, end: 20090301
  7. VINCRISTINE SULFATE [Suspect]
     Indication: HODGKIN'S DISEASE
     Dosage: 21 DAY REGIMEN
     Route: 051
     Dates: start: 20081101, end: 20090301
  8. WELLVONE [Concomitant]
  9. PANTOZOL [Concomitant]
  10. PREDNISONE [Suspect]
     Indication: HODGKIN'S DISEASE
     Dosage: 21 DAY REGIMEN
     Route: 048
     Dates: start: 20081101, end: 20090301
  11. DOXORUBICIN HCL [Suspect]
     Indication: HODGKIN'S DISEASE
     Dosage: 21 DAY REGIMEN
     Route: 051
     Dates: start: 20081101, end: 20090301
  12. TRANSIPEG [Concomitant]

REACTIONS (10)
  - LIVER ABSCESS [None]
  - VOMITING [None]
  - MYALGIA [None]
  - ARTHRALGIA [None]
  - NAUSEA [None]
  - PYREXIA [None]
  - AMENORRHOEA [None]
  - BONE DENSITY DECREASED [None]
  - BONE MARROW FAILURE [None]
  - SEPSIS [None]
